FAERS Safety Report 7945632-9 (Version None)
Quarter: 2011Q4

REPORT INFORMATION
  Report Type: 
  Country: None (occurrence: None)
  Receive Date: 20111129
  Receipt Date: 20111118
  Transmission Date: 20120403
  Serious: Yes (Other)
  Sender: FDA-Public Use
  Company Number: US-CELGENEUS-163-21880-11112904

PATIENT
  Sex: Male

DRUGS (4)
  1. ACE INHIBITOR [Concomitant]
     Route: 065
  2. STATIN [Concomitant]
     Route: 065
  3. ALPHAGAN P [Concomitant]
     Route: 065
  4. REVLIMID [Suspect]
     Indication: MYELODYSPLASTIC SYNDROME
     Dosage: 5 MILLIGRAM
     Route: 048
     Dates: start: 20081101

REACTIONS (1)
  - RETINAL VEIN THROMBOSIS [None]
